FAERS Safety Report 5340469-1 (Version None)
Quarter: 2007Q2

REPORT INFORMATION
  Report Type: 
  Country: None (occurrence: None)
  Receive Date: 20070531
  Receipt Date: 20070522
  Transmission Date: 20071010
  Serious: Yes (Hospitalization, Other)
  Sender: FDA-Public Use
  Company Number: US-PFIZER INC-2007028022

PATIENT
  Sex: Female
  Weight: 72.6 kg

DRUGS (2)
  1. BEXTRA [Suspect]
     Indication: SCIATICA
     Dates: start: 20040804, end: 20040801
  2. TOPROL-XL [Concomitant]
     Indication: HYPERTENSION

REACTIONS (5)
  - ANXIETY [None]
  - BALANCE DISORDER [None]
  - CONFUSIONAL STATE [None]
  - DYSTONIA [None]
  - HALLUCINATION, VISUAL [None]
